FAERS Safety Report 8250833-9 (Version None)
Quarter: 2012Q2

REPORT INFORMATION
  Report Type: 
  Country: None (occurrence: None)
  Receive Date: 20120402
  Receipt Date: 20120326
  Transmission Date: 20120825
  Serious: Yes (Death, Hospitalization, Other)
  Sender: FDA-Public Use
  Company Number: PHHY2012BR005430

PATIENT
  Age: 82 Year
  Sex: Female

DRUGS (4)
  1. EXEMESTANE [Concomitant]
  2. AMOXICILLIN [Concomitant]
  3. EVEROLIMUS [Suspect]
     Indication: BREAST CANCER
     Dosage: 10 MG, DAILY
     Route: 048
  4. DEXAMETHASONE [Concomitant]
     Dosage: 4 MG, Q6H

REACTIONS (7)
  - DEEP VEIN THROMBOSIS [None]
  - LUNG INFILTRATION [None]
  - PLATELET COUNT DECREASED [None]
  - ACUTE RESPIRATORY FAILURE [None]
  - DYSPNOEA [None]
  - CONDITION AGGRAVATED [None]
  - ERYSIPELAS [None]
